FAERS Safety Report 18151214 (Version 4)
Quarter: 2020Q4

REPORT INFORMATION
  Report Type: Spontaneous
  Country: US (occurrence: US)
  Receive Date: 20200814
  Receipt Date: 20201111
  Transmission Date: 20210113
  Serious: No
  Sender: FDA-Public Use
  Company Number: US-JNJFOC-20200812823

PATIENT
  Age: 22 Year
  Sex: Male
  Weight: 70.37 kg

DRUGS (1)
  1. TREMFYA [Suspect]
     Active Substance: GUSELKUMAB
     Indication: PSORIASIS
     Route: 065

REACTIONS (5)
  - Product quality issue [Unknown]
  - Device physical property issue [Unknown]
  - Product dose omission issue [Unknown]
  - Psoriasis [Unknown]
  - Suspected product tampering [Unknown]

NARRATIVE: CASE EVENT DATE: 2020
